FAERS Safety Report 14488614 (Version 1)
Quarter: 2018Q1

REPORT INFORMATION
  Report Type: Report from Study
  Country: ES (occurrence: ES)
  Receive Date: 20180206
  Receipt Date: 20180206
  Transmission Date: 20180509
  Serious: Yes (Hospitalization)
  Sender: FDA-Public Use
  Company Number: ES-TEVA-2018-ES-851633

PATIENT
  Age: 46 Year
  Sex: Female
  Weight: 56 kg

DRUGS (5)
  1. LEVOTIROXINA 88 [Concomitant]
     Dosage: 1 CP
     Route: 048
     Dates: start: 20120101
  2. ZARIZIO (FILGRASTIM) [Suspect]
     Active Substance: FILGRASTIM
     Dosage: 600 MCG
     Route: 058
     Dates: start: 20170413, end: 20170417
  3. ENALAPRIL 5 [Suspect]
     Active Substance: ENALAPRIL
     Indication: HYPERTENSION
     Dosage: 1-0-0
     Route: 048
     Dates: start: 20170413, end: 20170415
  4. PRIMOLUT (NORETHISTERONE) [Concomitant]
     Active Substance: NORETHINDRONE
     Dosage: 1 CP
     Route: 048
     Dates: start: 20150312
  5. ATORVASTATINA 40 [Concomitant]
     Indication: HYPERCHOLESTEROLAEMIA
     Route: 048
     Dates: start: 20140101

REACTIONS (1)
  - Hypoglycaemia [Recovered/Resolved]

NARRATIVE: CASE EVENT DATE: 20170415
